FAERS Safety Report 15254613 (Version 1)
Quarter: 2018Q4

REPORT INFORMATION
  Report Type: Other
  Country: NL (occurrence: NL)
  Receive Date: 20180808
  Receipt Date: 20180808
  Transmission Date: 20190204
  Serious: Yes (Life-Threatening, Hospitalization)
  Sender: FDA-Public Use
  Company Number: NL-ALCAMI_CORPORATION-USA-POI0581201800006

PATIENT
  Age: 61 Year
  Sex: Male

DRUGS (2)
  1. AZASAN [Suspect]
     Active Substance: AZATHIOPRINE
     Indication: VASCULITIS
     Dates: start: 2016, end: 2016
  2. AZASAN [Suspect]
     Active Substance: AZATHIOPRINE
     Dates: start: 2016, end: 2016

REACTIONS (1)
  - Eosinophilic myocarditis [Recovered/Resolved]

NARRATIVE: CASE EVENT DATE: 201606
